FAERS Safety Report 18013923 (Version 1)
Quarter: 2020Q3

REPORT INFORMATION
  Report Type: Report from Study
  Country: US (occurrence: US)
  Receive Date: 20200713
  Receipt Date: 20200713
  Transmission Date: 20201103
  Serious: Yes (Other)
  Sender: FDA-Public Use
  Company Number: US-JNJFOC-20200701814

PATIENT
  Age: 56 Year
  Sex: Male
  Weight: 85.4 kg

DRUGS (4)
  1. MAGIC MOUTHWASH [Concomitant]
     Active Substance: DIPHENHYDRAMINE HYDROCHLORIDE\LIDOCAINE HYDROCHLORIDE\NYSTATIN
     Indication: STOMATITIS
  2. DEXAMETHASONE. [Concomitant]
     Active Substance: DEXAMETHASONE
     Indication: STOMATITIS
     Dosage: SWISH AND SPIT
  3. LIDOCAINE. [Concomitant]
     Active Substance: LIDOCAINE
     Indication: STOMATITIS
     Route: 061
  4. ERDAFITINIB. [Suspect]
     Active Substance: ERDAFITINIB
     Indication: ADENOCARCINOMA PANCREAS
     Dosage: 8 OR 9 MG; DRUG HELD ON 07?JAN?2019
     Route: 048
     Dates: start: 20181010

REACTIONS (2)
  - Stomatitis [Recovered/Resolved]
  - Anaemia [Unknown]

NARRATIVE: CASE EVENT DATE: 20190107
